FAERS Safety Report 9790309 (Version 1)
Quarter: 2013Q4

REPORT INFORMATION
  Report Type: Spontaneous
  Country: AU (occurrence: AU)
  Receive Date: 20131231
  Receipt Date: 20131231
  Transmission Date: 20140711
  Serious: Yes (Other)
  Sender: FDA-Public Use
  Company Number: AU-ASTRAZENECA-2013SE93518

PATIENT
  Age: 68 Year
  Sex: Female

DRUGS (4)
  1. CRESTOR [Suspect]
     Route: 048
     Dates: start: 20131122, end: 20131122
  2. CARDIZEM CD [Concomitant]
  3. MICARDIS PLUS [Concomitant]
     Dosage: 80/12.5 MG
  4. NOVOMIX [Concomitant]
     Dosage: 30 FLEXPEN

REACTIONS (1)
  - Hepatotoxicity [Unknown]
